FAERS Safety Report 7324839-8 (Version None)
Quarter: 2011Q1

REPORT INFORMATION
  Report Type: 
  Country: None (occurrence: None)
  Receive Date: 20110301
  Receipt Date: 20110221
  Transmission Date: 20110831
  Serious: Yes (Hospitalization, Other)
  Sender: FDA-Public Use
  Company Number: US-B.I. PHARMACEUTICALS,INC./RIDGEFIELD-2011-BP-00959BP

PATIENT
  Age: 78 Year
  Sex: Male

DRUGS (1)
  1. PRADAXA [Suspect]
     Route: 048
     Dates: end: 20110110

REACTIONS (3)
  - AORTIC DISSECTION [None]
  - PULMONARY MASS [None]
  - HAEMORRHAGE [None]
